FAERS Safety Report 4380180-7 (Version None)
Quarter: 2004Q2

REPORT INFORMATION
  Report Type: 
  Country: None (occurrence: None)
  Receive Date: 20040601
  Receipt Date: 20040419
  Transmission Date: 20050107
  Serious: No
  Sender: FDA-Public Use
  Company Number: WAES 0404USA02207

PATIENT
  Age: 60 Year
  Sex: Female

DRUGS (5)
  1. ZETIA [Suspect]
     Dosage: PO
     Route: 048
  2. CARDIZEM CD [Concomitant]
  3. COUMADIN [Concomitant]
  4. PRAVACHOL [Concomitant]
  5. POTASSIUM [Concomitant]

REACTIONS (1)
  - MYALGIA [None]
